FAERS Safety Report 8001294-6 (Version None)
Quarter: 2011Q4

REPORT INFORMATION
  Report Type: 
  Country: None (occurrence: None)
  Receive Date: 20111219
  Receipt Date: 20111207
  Transmission Date: 20120403
  Serious: Yes (Hospitalization, Other)
  Sender: FDA-Public Use
  Company Number: 2011SP057522

PATIENT
  Sex: Female

DRUGS (4)
  1. PEGASYS [Suspect]
     Indication: HEPATITIS C
     Dates: start: 20091002, end: 20101001
  2. PEGASYS [Suspect]
     Indication: HEPATITIS C
     Dates: start: 20111021
  3. RIBAVIRIN [Suspect]
     Indication: HEPATITIS C
     Dates: start: 20091002, end: 20101001
  4. RIBAVIRIN [Suspect]
     Indication: HEPATITIS C
     Dates: start: 20111021

REACTIONS (1)
  - NERVE COMPRESSION [None]
